FAERS Safety Report 9242676 (Version 3)
Quarter: 2013Q3

REPORT INFORMATION
  Report Type: Spontaneous
  Country: HR (occurrence: HR)
  Receive Date: 20130419
  Receipt Date: 20130918
  Transmission Date: 20140515
  Serious: Yes (Other)
  Sender: FDA-Public Use
  Company Number: HR-GLAXOSMITHKLINE-B0885313A

PATIENT
  Age: 76 Year
  Sex: Female

DRUGS (4)
  1. LAMICTAL [Suspect]
     Indication: EPILEPSY
     Route: 065
  2. TEGRETOL [Concomitant]
  3. SILYMARIN [Concomitant]
  4. APAURIN [Concomitant]

REACTIONS (3)
  - Blister [Recovered/Resolved]
  - Burning sensation [Recovered/Resolved]
  - Erythema [Recovered/Resolved]
